FAERS Safety Report 9724853 (Version 1)
Quarter: 2013Q4

REPORT INFORMATION
  Report Type: Spontaneous
  Country: US (occurrence: US)
  Receive Date: 20131202
  Receipt Date: 20131202
  Transmission Date: 20140711
  Serious: No
  Sender: FDA-Public Use
  Company Number: US-TEVA-443976USA

PATIENT
  Sex: Male
  Weight: 115.32 kg

DRUGS (6)
  1. PROAIR HFA [Suspect]
     Indication: ASTHMA
  2. HALDOL [Concomitant]
     Indication: MENTAL DISORDER
     Dates: start: 1979
  3. COLCHICINE [Concomitant]
     Indication: MENTAL DISORDER
  4. BENZATROPINE [Concomitant]
     Indication: MENTAL DISORDER
  5. AMLODIPINE/BENAZEPRIL [Concomitant]
     Indication: HYPERTENSION
  6. METFORMIN [Concomitant]
     Indication: TYPE 2 DIABETES MELLITUS

REACTIONS (2)
  - Drug effect decreased [Unknown]
  - Expired drug administered [Unknown]
